FAERS Safety Report 7543145-X (Version None)
Quarter: 2011Q2

REPORT INFORMATION
  Report Type: 
  Country: None (occurrence: None)
  Receive Date: 20110613
  Receipt Date: 20110613
  Transmission Date: 20111010
  Serious: Yes (Life-Threatening, Hospitalization, Other)
  Sender: FDA-Public Use
  Company Number: PHHO2008FR06319

PATIENT
  Sex: Male
  Weight: 84 kg

DRUGS (13)
  1. NEORAL [Suspect]
     Indication: CHRONIC GRAFT VERSUS HOST DISEASE
     Dosage: 100 MG, BID
     Route: 042
     Dates: end: 20080509
  2. ZEFFIX [Concomitant]
     Indication: HEPATITIS B
  3. NOXAFIL [Concomitant]
     Indication: FUNGAL INFECTION
  4. OROCAL D3 [Concomitant]
     Indication: NUTRITIONAL SUPPORT
  5. RAMIPRIL [Concomitant]
     Indication: HYPERTENSION
  6. LANTUS [Concomitant]
     Indication: DIABETES MELLITUS
  7. PLACEBO [Suspect]
     Indication: CHRONIC GRAFT VERSUS HOST DISEASE
     Dosage: UNK
     Route: 048
     Dates: start: 20080418, end: 20080509
  8. PHENOXYMETHYL PENICILLIN [Concomitant]
  9. ACTONEL [Concomitant]
  10. HUMALOG [Concomitant]
     Indication: DIABETES MELLITUS
  11. VALACYCLOVIR HYDROCHLORIDE [Concomitant]
  12. NEURONTIN [Concomitant]
  13. PREDNISONE [Suspect]
     Indication: CHRONIC GRAFT VERSUS HOST DISEASE
     Dosage: 110 MG, QD
     Route: 042
     Dates: end: 20080509

REACTIONS (6)
  - CYTOLYTIC HEPATITIS [None]
  - SEPTIC SHOCK [None]
  - ESCHERICHIA SEPSIS [None]
  - THROMBOTIC THROMBOCYTOPENIC PURPURA [None]
  - HEPATITIS CHOLESTATIC [None]
  - INTRA-ABDOMINAL HAEMORRHAGE [None]
